FAERS Safety Report 19577454 (Version 1)
Quarter: 2021Q3

REPORT INFORMATION
  Report Type: Spontaneous
  Country: US (occurrence: US)
  Receive Date: 20210719
  Receipt Date: 20210719
  Transmission Date: 20211014
  Serious: Yes (Other)
  Sender: FDA-Public Use
  Company Number: US-PURDUE-USA-2020-0275319

PATIENT
  Sex: Male

DRUGS (1)
  1. OXYCONTIN [Suspect]
     Active Substance: OXYCODONE HYDROCHLORIDE
     Indication: PRODUCT USED FOR UNKNOWN INDICATION
     Dosage: UNK
     Route: 048

REACTIONS (7)
  - Emotional distress [Unknown]
  - Behaviour disorder [Unknown]
  - Obstructive airways disorder [Unknown]
  - Drug withdrawal syndrome neonatal [Unknown]
  - Pain [Unknown]
  - Foetal exposure during pregnancy [Unknown]
  - Speech disorder [Unknown]
